FAERS Safety Report 5231441-0 (Version None)
Quarter: 2007Q1

REPORT INFORMATION
  Report Type: 
  Country: None (occurrence: None)
  Receive Date: 20070206
  Receipt Date: 20070123
  Transmission Date: 20070707
  Serious: Yes (Hospitalization)
  Sender: FDA-Public Use
  Company Number: US-SHR-US-2006-003953

PATIENT
  Age: 28 Year
  Sex: Female
  Weight: 71.565 kg

DRUGS (25)
  1. COPAXONE [Suspect]
     Indication: RELAPSING-REMITTING MULTIPLE SCLEROSIS
     Dosage: COPAXONE
     Route: 058
     Dates: start: 20040923, end: 20050414
  2. IBUPROFEN [Concomitant]
     Indication: HEADACHE
     Dosage: 400 MG, AS REQ'D
     Route: 048
     Dates: start: 20031001
  3. TRAZODONE HCL [Concomitant]
     Indication: DEPRESSION
     Dosage: 150 MG DAILY
     Route: 048
     Dates: start: 20040825
  4. LORAZEPAM [Concomitant]
     Indication: INSOMNIA
     Dosage: .25 TO .50 MG TWICE DAILY PRN
     Route: 048
     Dates: start: 20050319, end: 20050429
  5. LORAZEPAM [Concomitant]
     Dosage: .5 MG, BED T.
     Route: 048
     Dates: start: 20050516
  6. ORTHO TRI-CYCLEN LO [Concomitant]
     Dosage: 1 TAB(S), 1X/DAY
     Route: 048
     Dates: start: 20040922
  7. ACETAMINOPHEN [Concomitant]
     Dosage: 1000 MG, EVERY 2D
     Route: 048
     Dates: start: 20050513
  8. EFFEXOR XR [Concomitant]
     Indication: DEPRESSION
     Dosage: 75 MG, 1X/DAY
     Route: 048
     Dates: start: 20050725, end: 20060221
  9. AMITRIPTYLINE HCL [Concomitant]
     Indication: HEADACHE
     Dosage: 75 MG, BED T. PRN
     Route: 048
     Dates: start: 20051024
  10. VICODIN [Concomitant]
     Dosage: 7.5/750 MG DAILY
     Route: 048
     Dates: start: 20051219, end: 20051226
  11. AMOXICILLIN [Concomitant]
     Dosage: 500 MG, 1X/DAY
     Route: 048
     Dates: start: 20051219, end: 20060104
  12. MEDROL [Concomitant]
     Indication: GINGIVAL OPERATION
     Dosage: UNK, 1X/DAY
     Route: 048
     Dates: start: 20051219, end: 20051226
  13. BETASERON [Suspect]
     Indication: RELAPSING-REMITTING MULTIPLE SCLEROSIS
     Dosage: .25 ML, EVERY 2D
     Route: 058
     Dates: start: 20050513, end: 20050525
  14. BETASERON [Suspect]
     Dosage: .5 ML, EVERY 2D
     Route: 058
     Dates: start: 20050527, end: 20050608
  15. BETASERON [Suspect]
     Dosage: .75 ML, EVERY 2D
     Route: 058
     Dates: start: 20050610, end: 20050701
  16. BETASERON [Suspect]
     Dosage: 1 ML, EVERY 2D
     Route: 058
     Dates: start: 20050701, end: 20060221
  17. BETASERON [Suspect]
     Dosage: UNK, EVERY 2D
     Route: 058
     Dates: start: 20060323, end: 20060331
  18. BETASERON [Suspect]
     Dosage: 1 ML, EVERY 2D
     Route: 058
     Dates: start: 20060401
  19. NORTRIPTYLINE HCL [Concomitant]
     Indication: DEPRESSION
     Dosage: 75 MG, 1X/DAY
     Route: 048
     Dates: start: 20040701, end: 20040819
  20. NORTRIPTYLINE HCL [Concomitant]
     Dosage: 100 MG DAILY
     Route: 048
     Dates: start: 20040820, end: 20040908
  21. MIRTAZAPINE [Concomitant]
     Indication: DEPRESSION
     Dosage: 15 MG, 1X/DAY
     Route: 048
     Dates: start: 20040909, end: 20050319
  22. AMBIEN [Concomitant]
     Indication: INSOMNIA
     Dosage: 10 MG, BED T.
     Route: 048
     Dates: start: 20050429, end: 20050515
  23. CEPHALEXIN [Concomitant]
     Indication: EAR INFECTION
     Dosage: 500 MG, 3X/DAY
     Route: 048
     Dates: start: 20050512, end: 20050521
  24. HYDROCORTISONE [Concomitant]
     Indication: INJECTION SITE REACTION
     Dosage: AS REQ'D
     Route: 061
     Dates: start: 20041101, end: 20050401
  25. EFFEXOR XR [Concomitant]
     Indication: DEPRESSION
     Dosage: 150 MG, 1X/DAY IN AM
     Route: 048
     Dates: start: 20060201

REACTIONS (1)
  - AFFECTIVE DISORDER [None]
